FAERS Safety Report 7001537-1 (Version None)
Quarter: 2010Q3

REPORT INFORMATION
  Report Type: 
  Country: None (occurrence: None)
  Receive Date: 20100920
  Receipt Date: 20100909
  Transmission Date: 20110219
  Serious: Yes (Hospitalization)
  Sender: FDA-Public Use
  Company Number: PHHY2010TW20934

PATIENT
  Sex: Male

DRUGS (2)
  1. GLEEVEC [Suspect]
     Indication: CHRONIC MYELOID LEUKAEMIA
     Dosage: 400 MG, UNK
     Route: 048
     Dates: start: 20030102
  2. GLEEVEC [Suspect]
     Dosage: 400 MG, UNK
     Route: 048
     Dates: start: 20100402

REACTIONS (5)
  - COLON CANCER STAGE I [None]
  - ENTEROSTOMY [None]
  - HAEMATOCHEZIA [None]
  - NEOPLASM MALIGNANT [None]
  - SURGERY [None]
